FAERS Safety Report 19147939 (Version 9)
Quarter: 2022Q1

REPORT INFORMATION
  Report Type: Report from Study
  Country: US (occurrence: None)
  Receive Date: 20210416
  Receipt Date: 20220210
  Transmission Date: 20220423
  Serious: Yes (Life-Threatening, Hospitalization)
  Sender: FDA-Public Use
  Company Number: US-ROCHE-2802910

PATIENT
  Age: 72 Year
  Sex: Male
  Weight: 81.5 kg

DRUGS (32)
  1. TIRAGOLUMAB [Suspect]
     Active Substance: TIRAGOLUMAB
     Indication: Non-small cell lung cancer metastatic
     Dosage: MOST RECENT DOSE PRIOR TO AE: 09/FEB/2021
     Route: 042
     Dates: start: 20181004
  2. ATEZOLIZUMAB [Suspect]
     Active Substance: ATEZOLIZUMAB
     Indication: Non-small cell lung cancer metastatic
     Dosage: DATE OF MOST RECENT DOSE OF ATEZOLIZUMAB PRIOR TO SAE: 09/FEB/2021 AT 11:03 AM TILL 12:11 PM.
     Route: 041
     Dates: start: 20181004
  3. INSULIN LISPRO [Concomitant]
     Active Substance: INSULIN LISPRO
     Indication: Hyperglycaemia
     Dosage: 8 U
     Route: 030
     Dates: start: 20210328
  4. METOPROLOL [Concomitant]
     Active Substance: METOPROLOL
     Indication: Hyperglycaemia
     Dates: start: 20210119
  5. METOPROLOL [Concomitant]
     Active Substance: METOPROLOL
     Indication: Hypertension
     Dates: start: 20210119
  6. METOPROLOL [Concomitant]
     Active Substance: METOPROLOL
     Route: 048
     Dates: start: 20200624
  7. METOPROLOL [Concomitant]
     Active Substance: METOPROLOL
     Route: 048
     Dates: start: 20200825
  8. MAGNESIUM [Concomitant]
     Active Substance: MAGNESIUM
     Route: 048
     Dates: start: 20200127
  9. PEPCID AC [Concomitant]
     Active Substance: FAMOTIDINE
     Indication: Gastrooesophageal reflux disease
     Route: 048
     Dates: start: 20200108
  10. CHOLECALCIFEROL [Concomitant]
     Active Substance: CHOLECALCIFEROL
     Route: 048
     Dates: start: 20160705
  11. RIVAROXABAN [Concomitant]
     Active Substance: RIVAROXABAN
     Indication: Atrial fibrillation
     Route: 048
     Dates: start: 20141202
  12. ATORVASTATIN [Concomitant]
     Active Substance: ATORVASTATIN
     Indication: Hyperlipidaemia
     Route: 048
     Dates: start: 20130828
  13. DILTIAZEM [Concomitant]
     Active Substance: DILTIAZEM
     Indication: Hypertension
     Route: 048
     Dates: start: 20160715
  14. DILTIAZEM [Concomitant]
     Active Substance: DILTIAZEM
     Route: 048
     Dates: start: 20160715
  15. LEVOTHYROXINE SODIUM [Concomitant]
     Active Substance: LEVOTHYROXINE SODIUM
     Indication: Hypothyroidism
     Route: 048
     Dates: start: 20180519
  16. LEVOTHYROXINE SODIUM [Concomitant]
     Active Substance: LEVOTHYROXINE SODIUM
     Route: 048
     Dates: start: 20180519
  17. ATORVASTATIN CALCIUM [Concomitant]
     Active Substance: ATORVASTATIN CALCIUM
     Indication: Hyperlipidaemia
     Route: 048
     Dates: start: 20130828
  18. FERROUS FUMARATE [Concomitant]
     Active Substance: FERROUS FUMARATE
     Route: 048
     Dates: start: 20160705
  19. LEVETIRACETAM [Concomitant]
     Active Substance: LEVETIRACETAM
     Indication: Seizure
     Route: 048
     Dates: start: 20180829
  20. LEVETIRACETAM [Concomitant]
     Active Substance: LEVETIRACETAM
     Route: 042
     Dates: start: 20210406
  21. BENADRYL [Concomitant]
     Active Substance: DIPHENHYDRAMINE HYDROCHLORIDE
     Route: 042
     Dates: start: 20181205
  22. LIDOCAINE;PRILOCAINE [Concomitant]
     Route: 061
     Dates: start: 20181025
  23. OXYGEN [Concomitant]
     Active Substance: OXYGEN
     Route: 048
     Dates: start: 20210224
  24. ENOXAPARIN [Concomitant]
     Active Substance: ENOXAPARIN
     Route: 030
     Dates: start: 20210410
  25. ENOXAPARIN [Concomitant]
     Active Substance: ENOXAPARIN
     Route: 030
     Dates: start: 20210405, end: 20210406
  26. AMOXICILLIN [Concomitant]
     Active Substance: AMOXICILLIN
     Indication: Pneumonia aspiration
     Route: 048
     Dates: start: 20210409, end: 20210411
  27. BISACODYL [Concomitant]
     Active Substance: BISACODYL
     Indication: Constipation
     Route: 054
     Dates: start: 20210403, end: 20210403
  28. BARIUM SULFATE [Concomitant]
     Active Substance: BARIUM SULFATE
     Route: 048
     Dates: start: 20210402, end: 20210402
  29. DIGOXIN [Concomitant]
     Active Substance: DIGOXIN
     Indication: Atrial fibrillation
     Route: 042
     Dates: start: 20210331, end: 20210401
  30. ALPRAZOLAM [Concomitant]
     Active Substance: ALPRAZOLAM
     Indication: Dyspnoea
     Route: 048
     Dates: start: 20210330, end: 20210330
  31. VANCOMYCIN [Concomitant]
     Active Substance: VANCOMYCIN
     Indication: Pneumonia
     Route: 042
     Dates: start: 20210409
  32. ZOSYN [Concomitant]
     Active Substance: PIPERACILLIN SODIUM\TAZOBACTAM SODIUM
     Indication: Pneumonia
     Route: 042
     Dates: start: 20210409

REACTIONS (2)
  - Pneumonitis [Not Recovered/Not Resolved]
  - Embolism [Not Recovered/Not Resolved]

NARRATIVE: CASE EVENT DATE: 20210224
